FAERS Safety Report 21528467 (Version 1)
Quarter: 2022Q4

REPORT INFORMATION
  Report Type: Report from Study
  Country: GB (occurrence: GB)
  Receive Date: 20221031
  Receipt Date: 20221031
  Transmission Date: 20230113
  Serious: Yes (Other)
  Sender: FDA-Public Use
  Company Number: GB-GLAXOSMITHKLINE-GB2022EME005416

PATIENT

DRUGS (2)
  1. NIRAPARIB [Suspect]
     Active Substance: NIRAPARIB
     Indication: Neoplasm malignant
     Dosage: 100 MG
  2. NIRAPARIB [Suspect]
     Active Substance: NIRAPARIB
     Dosage: UNK

REACTIONS (7)
  - Malignant neoplasm progression [Unknown]
  - Blood pressure increased [Unknown]
  - Heart rate increased [Unknown]
  - Constipation [Unknown]
  - Dizziness [Unknown]
  - Haemoglobin decreased [Recovered/Resolved]
  - Product dose omission issue [Unknown]
